FAERS Safety Report 6206037-4 (Version None)
Quarter: 2009Q2

REPORT INFORMATION
  Report Type: 
  Country: None (occurrence: None)
  Receive Date: 20090528
  Receipt Date: 20090520
  Transmission Date: 20091009
  Serious: Yes (Hospitalization)
  Sender: FDA-Public Use
  Company Number: US-ELI_LILLY_AND_COMPANY-US200905004565

PATIENT
  Sex: Female
  Weight: 104.31 kg

DRUGS (10)
  1. BYETTA [Suspect]
     Indication: TYPE 2 DIABETES MELLITUS
     Dosage: 5 UG, 2/D
     Route: 058
     Dates: start: 20060101, end: 20060101
  2. BYETTA [Suspect]
     Dosage: 10 UG, 2/D
     Route: 058
     Dates: start: 20060101, end: 20070401
  3. BYETTA [Suspect]
     Dosage: 10 UG, 2/D
     Route: 058
     Dates: start: 20070401
  4. GLIMEPIRIDE [Concomitant]
     Indication: TYPE 2 DIABETES MELLITUS
  5. LIPITOR [Concomitant]
     Indication: BLOOD CHOLESTEROL INCREASED
  6. LEVOXYL [Concomitant]
     Indication: THYROID NEOPLASM
  7. AMIODARONE HCL [Concomitant]
     Indication: CARDIAC DISORDER
  8. SINGULAIR [Concomitant]
     Indication: ASTHMA
  9. RAMIPRIL [Concomitant]
     Indication: BLOOD PRESSURE INCREASED
  10. COUMADIN [Concomitant]
     Indication: CARDIAC DISORDER

REACTIONS (2)
  - CELLULITIS [None]
  - LIMB INJURY [None]
